FAERS Safety Report 10076696 (Version 1)
Quarter: 2014Q2

REPORT INFORMATION
  Report Type: Spontaneous
  Country: FR (occurrence: FR)
  Receive Date: 20140414
  Receipt Date: 20140414
  Transmission Date: 20141212
  Serious: Yes (Hospitalization)
  Sender: FDA-Public Use
  Company Number: FR-SA-2014SA040419

PATIENT
  Age: 56 Year
  Sex: Male

DRUGS (13)
  1. LASILIX SPECIAL [Suspect]
     Indication: PRODUCT USED FOR UNKNOWN INDICATION
     Route: 048
     Dates: end: 201402
  2. BACTRIM [Suspect]
     Indication: PROPHYLAXIS
     Route: 048
     Dates: start: 20140109, end: 201402
  3. ALDACTONE 50 MG FILMTABLETTEN [Suspect]
     Indication: PRODUCT USED FOR UNKNOWN INDICATION
     Route: 048
     Dates: end: 201402
  4. CORTICOSTEROIDS [Concomitant]
     Route: 042
     Dates: end: 20140202
  5. ROCEPHINE [Concomitant]
  6. BECILAN [Concomitant]
     Route: 048
  7. BEVITINE [Concomitant]
     Route: 048
  8. CALCIPARINE [Concomitant]
     Dosage: DOSE: 0.3X2
     Route: 058
  9. DAFALGAN CODEINE [Concomitant]
     Route: 048
  10. INEXIUM [Concomitant]
     Route: 048
  11. TRUVADA [Concomitant]
  12. DARUNAVIR [Concomitant]
     Route: 048
     Dates: end: 20140214
  13. NORVIR [Concomitant]
     Route: 048
     Dates: end: 20140214

REACTIONS (3)
  - Hepatocellular injury [Recovered/Resolved]
  - Renal failure acute [Recovered/Resolved]
  - Rash [Recovered/Resolved]
